FAERS Safety Report 8454660-9 (Version None)
Quarter: 2012Q2

REPORT INFORMATION
  Report Type: 
  Country: None (occurrence: None)
  Receive Date: 20120615
  Receipt Date: 20120615
  Transmission Date: 20120825
  Serious: Yes (Disabling)
  Sender: FDA-Public Use
  Company Number: None

PATIENT
  Age: 46 Year
  Sex: Male
  Weight: 94.3482 kg

DRUGS (2)
  1. NEXIUM [Suspect]
     Indication: GASTROOESOPHAGEAL REFLUX DISEASE
     Dosage: ONE TABLET ONCE DAILY PO
     Route: 048
     Dates: start: 20040101, end: 20060101
  2. PANTOPRAZOLE SODIUM [Suspect]
     Indication: GASTROOESOPHAGEAL REFLUX DISEASE
     Dosage: ONE TABLET ONCE DAILY PO
     Route: 048
     Dates: start: 20060101, end: 20120101

REACTIONS (2)
  - PATHOLOGICAL FRACTURE [None]
  - SPINAL FRACTURE [None]
